FAERS Safety Report 10677631 (Version 1)
Quarter: 2014Q4

REPORT INFORMATION
  Report Type: Spontaneous
  Country: FR (occurrence: FR)
  Receive Date: 20141229
  Receipt Date: 20141229
  Transmission Date: 20150529
  Serious: Yes (Other)
  Sender: FDA-Public Use
  Company Number: FR-ASTELLAS-2014US021258

PATIENT
  Age: 64 Year
  Sex: Male

DRUGS (2)
  1. LHRH [Concomitant]
     Indication: PROSTATE CANCER
     Dosage: UNK UNK, UNKNOWN FREQ.
     Route: 065
     Dates: start: 200709
  2. XTANDI [Suspect]
     Active Substance: ENZALUTAMIDE
     Indication: PROSTATE CANCER
     Route: 048
     Dates: start: 20140206, end: 20141029

REACTIONS (3)
  - Metastasis [Unknown]
  - Prostatic specific antigen increased [Unknown]
  - Off label use [Unknown]

NARRATIVE: CASE EVENT DATE: 20140206
